FAERS Safety Report 16357241 (Version 2)
Quarter: 2020Q2

REPORT INFORMATION
  Report Type: Spontaneous
  Country: US (occurrence: US)
  Receive Date: 20190527
  Receipt Date: 20200513
  Transmission Date: 20200713
  Serious: No
  Sender: FDA-Public Use
  Company Number: US-TORRENT-00007680

PATIENT
  Sex: Female
  Weight: 85 kg

DRUGS (1)
  1. LOSARTAN AND HYDROCHLOROTHIAZIDE [Suspect]
     Active Substance: HYDROCHLOROTHIAZIDE\LOSARTAN POTASSIUM
     Indication: HYPERTENSION
     Dosage: TAKING THE TABLETS SINCE A LONG TIME
     Dates: end: 20190206

REACTIONS (6)
  - Alopecia [Not Recovered/Not Resolved]
  - Malaise [Unknown]
  - Headache [Unknown]
  - Breast pain [Unknown]
  - Nausea [Unknown]
  - Feeling abnormal [Unknown]

NARRATIVE: CASE EVENT DATE: 20170711
